FAERS Safety Report 10190399 (Version 3)
Quarter: 2014Q2

REPORT INFORMATION
  Report Type: Not Available
  Country: FR (occurrence: FR)
  Receive Date: 20140522
  Receipt Date: 20140617
  Transmission Date: 20141212
  Serious: Yes (Hospitalization, Other)
  Sender: FDA-Public Use
  Company Number: FR-RB-067787-14

PATIENT
  Age: 21 Year
  Sex: Female
  Weight: 69 kg

DRUGS (9)
  1. SUBUTEX [Suspect]
     Indication: DRUG DEPENDENCE
     Route: 060
     Dates: start: 20130205, end: 20130401
  2. ALCOHOL [Suspect]
     Indication: PRODUCT USED FOR UNKNOWN INDICATION
     Dosage: DOSING DETAILS UNKNOWN
     Route: 065
     Dates: end: 20130401
  3. CRACK COCAINE [Suspect]
     Indication: PRODUCT USED FOR UNKNOWN INDICATION
     Dosage: DOSING DETAILS UNKNOWN
     Route: 065
     Dates: end: 2013
  4. LARGACTIL [Concomitant]
     Indication: ANXIETY
     Route: 048
     Dates: start: 20130205, end: 20130401
  5. SERESTA [Concomitant]
     Indication: PRODUCT USED FOR UNKNOWN INDICATION
     Route: 065
     Dates: start: 2013
  6. THERALENE [Concomitant]
     Indication: PRODUCT USED FOR UNKNOWN INDICATION
     Dosage: TAKING 20 MG IN THE EVENING
     Route: 065
     Dates: start: 2013
  7. IMOVANE [Concomitant]
     Indication: PRODUCT USED FOR UNKNOWN INDICATION
     Dosage: TAKING 7.5 MG AT NIGHT
     Route: 065
     Dates: start: 2013
  8. PROPESS [Concomitant]
     Indication: PRODUCT USED FOR UNKNOWN INDICATION
     Dosage: DOSING DETAILS UNKNOWN
     Route: 065
     Dates: start: 20130401, end: 20130401
  9. SPASFON [Concomitant]
     Indication: PRODUCT USED FOR UNKNOWN INDICATION
     Dosage: TOOK 1 DOSAGE FORM ONCE
     Route: 065
     Dates: start: 20130205, end: 20130205

REACTIONS (11)
  - Drug withdrawal syndrome [Recovered/Resolved]
  - Maternal exposure during pregnancy [Recovered/Resolved]
  - Gestational diabetes [Unknown]
  - Blood pressure increased [Unknown]
  - Diarrhoea [Unknown]
  - Abdominal pain [Unknown]
  - Drug abuse [Recovered/Resolved]
  - Social problem [Unknown]
  - Alcohol abuse [Recovered/Resolved]
  - Bradycardia foetal [Recovered/Resolved]
  - Caesarean section [Recovered/Resolved]
